FAERS Safety Report 11243377 (Version 2)
Quarter: 2015Q3

REPORT INFORMATION
  Report Type: Spontaneous
  Country: JP (occurrence: JP)
  Receive Date: 20150707
  Receipt Date: 20150716
  Transmission Date: 20151125
  Serious: Yes (Hospitalization, Other)
  Sender: FDA-Public Use
  Company Number: JP-MYLANLABS-2015M1022223

PATIENT

DRUGS (1)
  1. PACLITAXEL. [Suspect]
     Active Substance: PACLITAXEL
     Indication: BREAST CANCER
     Dosage: UNK,WEEKLY
     Dates: start: 201211

REACTIONS (3)
  - Alopecia [Unknown]
  - Arthralgia [Unknown]
  - Cholangitis sclerosing [Recovering/Resolving]
